FAERS Safety Report 15776539 (Version 1)
Quarter: 2018Q4

REPORT INFORMATION
  Report Type: Report from Study
  Country: US (occurrence: US)
  Receive Date: 20181231
  Receipt Date: 20181231
  Transmission Date: 20190205
  Serious: Yes (Other)
  Sender: FDA-Public Use
  Company Number: US-PFIZER INC-2018276169

PATIENT
  Age: 66 Year
  Sex: Female

DRUGS (2)
  1. FASLODEX [Concomitant]
     Active Substance: FULVESTRANT
     Dosage: UNK
  2. IBRANCE [Suspect]
     Active Substance: PALBOCICLIB
     Indication: BREAST CANCER FEMALE
     Dosage: 125 MG, CYCLIC (DAILY, 21 ON, 7 OFF)(DAILY 21 DAYS ON AND 7 DAYS OFF)
     Route: 048
     Dates: start: 20180627

REACTIONS (19)
  - Condition aggravated [Recovering/Resolving]
  - Neutropenia [Unknown]
  - Decubitus ulcer [Recovered/Resolved]
  - Lip exfoliation [Unknown]
  - Leukopenia [Unknown]
  - Muscle strain [Unknown]
  - Bone marrow failure [Unknown]
  - Fatigue [Recovering/Resolving]
  - Decreased appetite [Recovering/Resolving]
  - Weight decreased [Not Recovered/Not Resolved]
  - Productive cough [Recovered/Resolved]
  - Nausea [Recovering/Resolving]
  - Vulvovaginal rash [Recovering/Resolving]
  - Condition aggravated [Not Recovered/Not Resolved]
  - Limb injury [Unknown]
  - Chest injury [Unknown]
  - Urine odour abnormal [Unknown]
  - Vulvovaginal pruritus [Recovering/Resolving]
  - Product dose omission [Unknown]

NARRATIVE: CASE EVENT DATE: 2018
